FAERS Safety Report 6496873-1 (Version None)
Quarter: 2009Q4

REPORT INFORMATION
  Report Type: 
  Country: None (occurrence: None)
  Receive Date: 20091215
  Receipt Date: 20091204
  Transmission Date: 20100525
  Serious: Yes (Hospitalization)
  Sender: FDA-Public Use
  Company Number: US-BIOGENIDEC-2007BI022211

PATIENT
  Age: 41 Year
  Sex: Female

DRUGS (2)
  1. TYSABRI [Suspect]
     Indication: MULTIPLE SCLEROSIS
     Route: 042
     Dates: start: 20070817, end: 20071228
  2. TYSABRI [Suspect]
     Route: 042
     Dates: start: 20091001

REACTIONS (5)
  - ABDOMINAL ADHESIONS [None]
  - ATELECTASIS [None]
  - CHOLECYSTECTOMY [None]
  - POST PROCEDURAL PNEUMONIA [None]
  - UPPER RESPIRATORY TRACT INFECTION [None]
